FAERS Safety Report 16922101 (Version 2)
Quarter: 2019Q4

REPORT INFORMATION
  Report Type: Spontaneous
  Country: FR (occurrence: FR)
  Receive Date: 20191015
  Receipt Date: 20191119
  Transmission Date: 20200122
  Serious: No
  Sender: FDA-Public Use
  Company Number: FR-ABBVIE-19K-056-2963125-00

PATIENT
  Age: 40 Year
  Sex: Male

DRUGS (3)
  1. HULIO [Suspect]
     Active Substance: ADALIMUMAB
     Indication: SPONDYLITIS
     Dosage: UNK
     Route: 058
     Dates: start: 201905, end: 201908
  2. HULIO [Suspect]
     Active Substance: ADALIMUMAB
     Dosage: UNK
     Route: 058
     Dates: start: 201906
  3. HUMIRA [Suspect]
     Active Substance: ADALIMUMAB
     Indication: PRODUCT USED FOR UNKNOWN INDICATION
     Route: 058

REACTIONS (2)
  - Spondylitis [Recovered/Resolved]
  - Product substitution issue [Unknown]

NARRATIVE: CASE EVENT DATE: 2019
